FAERS Safety Report 9016071 (Version 1)
Quarter: 2013Q1

REPORT INFORMATION
  Report Type: Spontaneous
  Country: US (occurrence: US)
  Receive Date: 20130116
  Receipt Date: 20130116
  Transmission Date: 20140127
  Serious: No
  Sender: FDA-Public Use
  Company Number: US-TEVA-380509USA

PATIENT
  Age: 31 Year
  Sex: Female
  Weight: 68.1 kg

DRUGS (3)
  1. NUVIGIL [Suspect]
     Indication: CIRCADIAN RHYTHM SLEEP DISORDER
  2. SYNTHROID [Concomitant]
     Indication: HYPOTHYROIDISM
     Dosage: 137 MICROGRAM DAILY;
     Route: 048
  3. JOLINET [Concomitant]
     Indication: ORAL CONTRACEPTION

REACTIONS (3)
  - Erythema [Recovered/Resolved]
  - Palpitations [Recovered/Resolved]
  - Feeling jittery [Recovered/Resolved]
